FAERS Safety Report 13834802 (Version 1)
Quarter: 2017Q3

REPORT INFORMATION
  Report Type: Spontaneous
  Country: DE (occurrence: DE)
  Receive Date: 20170804
  Receipt Date: 20170804
  Transmission Date: 20171127
  Serious: Yes (Other)
  Sender: FDA-Public Use
  Company Number: DE-009507513-1708DEU000941

PATIENT
  Sex: Female

DRUGS (1)
  1. NUVARING [Suspect]
     Active Substance: ETHINYL ESTRADIOL\ETONOGESTREL
     Dosage: UNK
     Route: 067
     Dates: start: 2016

REACTIONS (3)
  - Abdominal pain [Unknown]
  - Injury [Unknown]
  - Porphyria [Unknown]

NARRATIVE: CASE EVENT DATE: 2017
